FAERS Safety Report 4377787-X (Version None)
Quarter: 2004Q2

REPORT INFORMATION
  Report Type: 
  Country: None (occurrence: None)
  Receive Date: 20040608
  Receipt Date: 20040524
  Transmission Date: 20050107
  Serious: Yes (Hospitalization)
  Sender: FDA-Public Use
  Company Number: 2004CG00977

PATIENT
  Age: 73 Year
  Sex: Male

DRUGS (12)
  1. TENORMIN [Suspect]
     Dosage: 50 MG BID PO
     Route: 048
     Dates: end: 20040327
  2. LASILIX [Suspect]
     Dates: end: 20040310
  3. LASILIX [Suspect]
     Dosage: 20 MG TID PO
     Route: 048
     Dates: start: 20040310, end: 20040327
  4. TRIATEC [Suspect]
     Dosage: 1 DF DAILY PO
     Route: 048
     Dates: end: 20040327
  5. APROVEL [Suspect]
     Dosage: 300 MG DAILY PO
     Route: 048
     Dates: start: 20040301, end: 20040327
  6. MOPRAL [Concomitant]
  7. ELISOR [Concomitant]
  8. PLAVIX [Concomitant]
  9. RIVOTRIL [Concomitant]
  10. HUMALOG MIX 25 [Concomitant]
  11. SPECIAFOLDINE [Concomitant]
  12. TARDYFERON  /GFR/ [Concomitant]

REACTIONS (4)
  - HYPERKALAEMIA [None]
  - HYPOVOLAEMIC SHOCK [None]
  - LOSS OF CONSCIOUSNESS [None]
  - RENAL FAILURE ACUTE [None]
